FAERS Safety Report 17757740 (Version 2)
Quarter: 2020Q2

REPORT INFORMATION
  Report Type: Spontaneous
  Country: CN (occurrence: CN)
  Receive Date: 20200507
  Receipt Date: 20200513
  Transmission Date: 20200714
  Serious: Yes (Life-Threatening)
  Sender: FDA-Public Use
  Company Number: CN-CELGENEUS-CHN-20200501490

PATIENT
  Age: 74 Year
  Sex: Female
  Weight: 60.7 kg

DRUGS (7)
  1. ABRAXANE [Suspect]
     Active Substance: PACLITAXEL
     Dosage: 200 MILLIGRAM
     Route: 041
     Dates: start: 20200305, end: 20200305
  2. RECOMBINANT HUMAN GRANULOCYTE STIMULATING FACTOR [Concomitant]
     Indication: BONE MARROW FAILURE
     Route: 058
     Dates: start: 20200306
  3. RACEMIC ANISODAMINE HYDROCHLORIDE [Concomitant]
     Indication: ABDOMINAL INFECTION
     Route: 041
     Dates: start: 20200306
  4. ABRAXANE [Suspect]
     Active Substance: PACLITAXEL
     Indication: OVARIAN CANCER
     Dosage: 200 MILLIGRAM
     Route: 041
     Dates: start: 20200227, end: 20200227
  5. RECOMBINANT HUMAN GRANULOCYTE STIMULATING FACTOR [Concomitant]
     Route: 058
     Dates: start: 20200307, end: 20200307
  6. CEFTRIAXONE SODIUM. [Concomitant]
     Active Substance: CEFTRIAXONE SODIUM
     Indication: ABDOMINAL INFECTION
     Route: 041
     Dates: start: 20200306, end: 20200306
  7. CARBOPLATIN. [Suspect]
     Active Substance: CARBOPLATIN
     Indication: OVARIAN CANCER
     Dosage: 450 MILLIGRAM
     Route: 041
     Dates: start: 20200228, end: 20200228

REACTIONS (1)
  - Bone marrow failure [Recovering/Resolving]

NARRATIVE: CASE EVENT DATE: 20200307
